FAERS Safety Report 20758211 (Version 1)
Quarter: 2022Q2

REPORT INFORMATION
  Report Type: Spontaneous
  Country: FR (occurrence: FR)
  Receive Date: 20220427
  Receipt Date: 20220427
  Transmission Date: 20220721
  Serious: Yes (Hospitalization)
  Sender: FDA-Public Use
  Company Number: None

PATIENT
  Age: 49 Year
  Sex: Female
  Weight: 68 kg

DRUGS (13)
  1. NEFOPAM [Suspect]
     Active Substance: NEFOPAM
     Indication: Pain
     Dosage: UNK
     Dates: start: 20210922, end: 20210923
  2. PREGABALIN [Suspect]
     Active Substance: PREGABALIN
     Indication: Neuralgia
     Dosage: 100 MILLIGRAM, QD
     Route: 048
     Dates: end: 20210927
  3. PREGABALIN [Suspect]
     Active Substance: PREGABALIN
     Dosage: 150 MILLIGRAM, QD
     Route: 048
     Dates: start: 20210928, end: 20211006
  4. PREGABALIN [Suspect]
     Active Substance: PREGABALIN
     Dosage: 100 MILLIGRAM, QD
     Route: 048
     Dates: start: 20211007
  5. ENOXAPARIN [Suspect]
     Active Substance: ENOXAPARIN
     Indication: Thrombosis prophylaxis
     Dosage: 0.7 MILLIGRAM, BID (12 HOURS)
     Route: 058
     Dates: start: 20210929, end: 20210930
  6. ENOXAPARIN [Suspect]
     Active Substance: ENOXAPARIN
     Dosage: 0.4 MILLIGRAM, QD
     Route: 058
     Dates: start: 20211001
  7. PHLOROGLUCINOL [Suspect]
     Active Substance: PHLOROGLUCINOL
     Indication: Abdominal pain
     Dosage: 160 MILLIGRAM, Q8H (IF NECESSARY)
     Route: 048
     Dates: start: 20210924
  8. METHYLPREDNISOLONE [Suspect]
     Active Substance: METHYLPREDNISOLONE
     Indication: Arthralgia
     Dosage: 70 MILLIGRAM, QD
     Route: 042
     Dates: start: 20210923, end: 20210927
  9. ACETAMINOPHEN [Suspect]
     Active Substance: ACETAMINOPHEN
     Indication: Pain
     Dosage: 1000 MILLIGRAM, Q8H
     Route: 048
     Dates: start: 20210921
  10. LANSOPRAZOLE [Suspect]
     Active Substance: LANSOPRAZOLE
     Indication: Helicobacter gastritis
     Dosage: 30 MILLIGRAM, QD
     Route: 048
     Dates: start: 20210921
  11. METOCLOPRAMIDE [Suspect]
     Active Substance: METOCLOPRAMIDE
     Indication: Nausea
     Dosage: UNK UNK, PRN (IF NECESSARY)
     Dates: start: 20210930
  12. OXAZEPAM [Suspect]
     Active Substance: OXAZEPAM
     Indication: Anxiety
     Dosage: 10 MILLIGRAM, QD (IF NECESSARY)
     Route: 048
     Dates: start: 20210928
  13. KETOPROFEN [Suspect]
     Active Substance: KETOPROFEN
     Indication: Arthralgia
     Dosage: 100 MILLIGRAM, BID (12 HOURS)
     Route: 042
     Dates: start: 20210925, end: 20210927

REACTIONS (1)
  - Tubulointerstitial nephritis [Recovered/Resolved]

NARRATIVE: CASE EVENT DATE: 20211001
